FAERS Safety Report 4979204-5 (Version None)
Quarter: 2006Q2

REPORT INFORMATION
  Report Type: 
  Country: None (occurrence: None)
  Receive Date: 20060421
  Receipt Date: 20060410
  Transmission Date: 20061013
  Serious: Yes (Hospitalization)
  Sender: FDA-Public Use
  Company Number: ES-GLAXOSMITHKLINE-B0420792A

PATIENT
  Age: 82 Year
  Sex: Female

DRUGS (5)
  1. FRAXIPARINE [Suspect]
     Indication: FEMORAL NECK FRACTURE
     Dosage: 2850IU PER DAY
     Route: 058
     Dates: start: 20051227
  2. ZINNAT [Suspect]
     Indication: DRUG USE FOR UNKNOWN INDICATION
     Dosage: 500MG PER DAY
     Route: 048
     Dates: start: 20051227
  3. NEOBRUFEN [Suspect]
     Indication: FEMORAL NECK FRACTURE
     Dosage: 600MG PER DAY
     Route: 048
     Dates: start: 20051227, end: 20060106
  4. SINEMET [Suspect]
     Dosage: 1TAB THREE TIMES PER DAY
     Route: 048
     Dates: start: 20051227
  5. PANTOPRAZOL [Suspect]
     Indication: DRUG USE FOR UNKNOWN INDICATION
     Route: 048
     Dates: start: 20051227

REACTIONS (1)
  - GASTROINTESTINAL HAEMORRHAGE [None]
